FAERS Safety Report 21473749 (Version 1)
Quarter: 2022Q4

REPORT INFORMATION
  Report Type: Spontaneous
  Country: US (occurrence: None)
  Receive Date: 20221018
  Receipt Date: 20221018
  Transmission Date: 20230113
  Serious: Yes (Hospitalization, Other)
  Sender: FDA-Public Use
  Company Number: US-Orexo US, Inc.-ORE202210-000040

PATIENT
  Age: 44 Year
  Sex: Male

DRUGS (1)
  1. BUPRENORPHINE\NALOXONE [Suspect]
     Active Substance: BUPRENORPHINE\NALOXONE
     Indication: Product used for unknown indication
     Route: 042

REACTIONS (4)
  - Costochondritis [Unknown]
  - Pseudomonas infection [Unknown]
  - Osteomyelitis [Unknown]
  - Wrong technique in product usage process [Unknown]
